FAERS Safety Report 4510195-7 (Version None)
Quarter: 2004Q4

REPORT INFORMATION
  Report Type: 
  Country: None (occurrence: None)
  Receive Date: 20041119
  Receipt Date: 20041028
  Transmission Date: 20050328
  Serious: Yes (Hospitalization)
  Sender: FDA-Public Use
  Company Number: FR_041005132

PATIENT
  Age: 51 Year
  Sex: Male
  Weight: 51 kg

DRUGS (8)
  1. PEMETREXED [Suspect]
     Indication: PLEURAL MESOTHELIOMA MALIGNANT
     Dosage: 500 MG/M2/1 OTHER
     Route: 050
     Dates: start: 20040923, end: 20041021
  2. CISPLATIN [Suspect]
     Indication: PLEURAL MESOTHELIOMA MALIGNANT
     Dosage: 75 MG/M2/1 OTHER
     Route: 050
     Dates: start: 20040923, end: 20041021
  3. FOLIC ACID [Concomitant]
  4. VITAMIN B-12 [Concomitant]
  5. PREDNISOLONE [Concomitant]
  6. PREVISCAN (FLUINDIONE) [Concomitant]
  7. DI-ANTALVIC [Concomitant]
  8. COVERSYL (PERINDOPRIL ERBUMINE) [Concomitant]

REACTIONS (4)
  - GASTRIC ULCER HAEMORRHAGE [None]
  - INTERNATIONAL NORMALISED RATIO INCREASED [None]
  - OVERDOSE [None]
  - SHOCK HAEMORRHAGIC [None]
